FAERS Safety Report 16073093 (Version 1)
Quarter: 2019Q1

REPORT INFORMATION
  Report Type: Spontaneous
  Country: US (occurrence: US)
  Receive Date: 20190314
  Receipt Date: 20190314
  Transmission Date: 20190418
  Serious: No
  Sender: FDA-Public Use
  Company Number: US-VIFOR (INTERNATIONAL) INC.-VIT-2019-01805

PATIENT
  Age: 61 Year
  Sex: Male
  Weight: 77.5 kg

DRUGS (2)
  1. MIRCERA [Suspect]
     Active Substance: METHOXY POLYETHYLENE GLYCOL-EPOETIN BETA
     Indication: PRODUCT USED FOR UNKNOWN INDICATION
     Dosage: 9TH DOSE
     Dates: start: 20160401
  2. MIRCERA [Suspect]
     Active Substance: METHOXY POLYETHYLENE GLYCOL-EPOETIN BETA
     Dosage: 1ST TO 8TH DOSE
     Dates: start: 20151211

REACTIONS (5)
  - Blood pressure decreased [Unknown]
  - Vomiting [Unknown]
  - Drug hypersensitivity [Unknown]
  - Pallor [Unknown]
  - Nausea [Unknown]

NARRATIVE: CASE EVENT DATE: 20160401
